FAERS Safety Report 6014714-3 (Version None)
Quarter: 2008Q4

REPORT INFORMATION
  Report Type: 
  Country: None (occurrence: None)
  Receive Date: 20081126
  Receipt Date: 20080829
  Transmission Date: 20090506
  Serious: Yes (Other)
  Sender: FDA-Public Use
  Company Number: 174469USA

PATIENT
  Age: 78 Year
  Sex: Male
  Weight: 92.5338 kg

DRUGS (1)
  1. AZITHROMYCIN [Suspect]
     Indication: SINUS CONGESTION
     Dosage: (250 MG, 2 IN 1 D), ORAL
     Route: 048
     Dates: start: 20080324, end: 20080324

REACTIONS (2)
  - DIARRHOEA [None]
  - HEART RATE IRREGULAR [None]
